FAERS Safety Report 5988420-5 (Version None)
Quarter: 2008Q4

REPORT INFORMATION
  Report Type: 
  Country: None (occurrence: None)
  Receive Date: 20081204
  Receipt Date: 20081121
  Transmission Date: 20090506
  Serious: Yes (Hospitalization)
  Sender: FDA-Public Use
  Company Number: GXKR2008GB11135

PATIENT
  Age: 33 Year
  Sex: Female

DRUGS (3)
  1. METFORMIN HCL [Suspect]
     Indication: GESTATIONAL DIABETES
     Dosage: 500 MG, BID, ORAL
     Route: 048
  2. ETHANOL (ETHANOL) [Suspect]
  3. COCAINE (COCAINE) [Suspect]

REACTIONS (15)
  - ALCOHOL ABUSE [None]
  - ANION GAP INCREASED [None]
  - DRUG ABUSE [None]
  - DRUG EXPOSURE DURING PREGNANCY [None]
  - DYSPNOEA [None]
  - FOETAL HYPOKINESIA [None]
  - HEART RATE INCREASED [None]
  - HYPOGLYCAEMIA [None]
  - INDUCED LABOUR [None]
  - INTRA-UTERINE DEATH [None]
  - LACTIC ACIDOSIS [None]
  - METABOLIC ACIDOSIS [None]
  - NAUSEA [None]
  - PALLOR [None]
  - STILLBIRTH [None]
